FAERS Safety Report 19083244 (Version 1)
Quarter: 2021Q2

REPORT INFORMATION
  Report Type: Spontaneous
  Country: US (occurrence: US)
  Receive Date: 20210401
  Receipt Date: 20210401
  Transmission Date: 20210717
  Serious: Yes (Life-Threatening)
  Sender: FDA-Public Use
  Company Number: None

PATIENT
  Age: 48 Year
  Sex: Female
  Weight: 60.75 kg

DRUGS (3)
  1. PROHANCE [Suspect]
     Active Substance: GADOTERIDOL
     Indication: SCAN WITH CONTRAST
     Dosage: ?          QUANTITY:279.3 INJECTION(S);OTHER FREQUENCY:ONCE;?
     Route: 042
     Dates: start: 20040430, end: 20040430
  2. FOSAMAX [Concomitant]
     Active Substance: ALENDRONATE SODIUM
  3. CALCIUM [Concomitant]
     Active Substance: CALCIUM

REACTIONS (4)
  - Contrast media reaction [None]
  - Heart rate increased [None]
  - Dysphonia [None]
  - Dyspnoea [None]

NARRATIVE: CASE EVENT DATE: 20040430
